FAERS Safety Report 23250073 (Version 1)
Quarter: 2023Q4

REPORT INFORMATION
  Report Type: Spontaneous
  Country: CN (occurrence: CN)
  Receive Date: 20231201
  Receipt Date: 20231201
  Transmission Date: 20240110
  Serious: Yes (Other)
  Sender: FDA-Public Use
  Company Number: CN-009507513-2311CHN009292

PATIENT
  Age: 54 Year
  Sex: Female
  Weight: 50.5 kg

DRUGS (2)
  1. CILASTATIN SODIUM\IMIPENEM [Suspect]
     Active Substance: CILASTATIN SODIUM\IMIPENEM
     Indication: Infection
     Dosage: 1 G, TID
     Route: 041
     Dates: start: 20231028, end: 20231105
  2. SODIUM CHLORIDE [Concomitant]
     Active Substance: SODIUM CHLORIDE
     Indication: Medication dilution
     Dosage: 100 ML TID
     Route: 041
     Dates: start: 20231028, end: 20231105

REACTIONS (9)
  - White blood cell count abnormal [Unknown]
  - Platelet count abnormal [Unknown]
  - Chest discomfort [Recovering/Resolving]
  - Dyspnoea [Recovering/Resolving]
  - Blood bilirubin abnormal [Unknown]
  - Blood albumin abnormal [Unknown]
  - Alanine aminotransferase abnormal [Unknown]
  - Aspartate aminotransferase abnormal [Unknown]
  - Haemoglobin abnormal [Unknown]

NARRATIVE: CASE EVENT DATE: 20230101
